FAERS Safety Report 19355018 (Version 1)
Quarter: 2021Q2

REPORT INFORMATION
  Report Type: Spontaneous
  Country: US (occurrence: US)
  Receive Date: 20210601
  Receipt Date: 20210601
  Transmission Date: 20210717
  Serious: Yes (Disabling)
  Sender: FDA-Public Use
  Company Number: None

PATIENT
  Age: 46 Year
  Sex: Male
  Weight: 72 kg

DRUGS (1)
  1. GADAVIST [Suspect]
     Active Substance: GADOBUTROL
     Indication: MAGNETIC RESONANCE IMAGING
     Route: 042
     Dates: start: 20190612, end: 20190813

REACTIONS (11)
  - Blepharospasm [None]
  - Paraesthesia [None]
  - Eye movement disorder [None]
  - Jaw disorder [None]
  - Burning sensation [None]
  - Contrast media toxicity [None]
  - Tongue biting [None]
  - Bone pain [None]
  - Initial insomnia [None]
  - Muscle twitching [None]
  - Pain [None]

NARRATIVE: CASE EVENT DATE: 20200701
